FAERS Safety Report 6442148-6 (Version None)
Quarter: 2009Q4

REPORT INFORMATION
  Report Type: 
  Country: None (occurrence: None)
  Receive Date: 20091116
  Receipt Date: 20091109
  Transmission Date: 20100525
  Serious: Yes (Death, Hospitalization)
  Sender: FDA-Public Use
  Company Number: PHHY2009EG47587

PATIENT
  Age: 9 Year
  Sex: Male

DRUGS (3)
  1. VOLTAREN [Suspect]
     Indication: ANTIINFLAMMATORY THERAPY
     Dosage: UNK
     Route: 051
     Dates: start: 20091029
  2. ANTIBIOTICS [Interacting]
  3. ANTIPYRETICS [Interacting]

REACTIONS (8)
  - CEREBRAL HAEMORRHAGE [None]
  - COMA [None]
  - DRUG INTERACTION [None]
  - GENERAL PHYSICAL HEALTH DETERIORATION [None]
  - H1N1 INFLUENZA [None]
  - HAEMATEMESIS [None]
  - OVERDOSE [None]
  - PYREXIA [None]
